FAERS Safety Report 21082435 (Version 1)
Quarter: 2022Q3

REPORT INFORMATION
  Report Type: Spontaneous
  Country: US (occurrence: US)
  Receive Date: 20220714
  Receipt Date: 20220714
  Transmission Date: 20221026
  Serious: Yes (Other)
  Sender: FDA-Public Use
  Company Number: US-SLATE RUN PHARMACEUTICALS-22US001197

PATIENT

DRUGS (5)
  1. METOPROLOL SUCCINATE [Suspect]
     Active Substance: METOPROLOL SUCCINATE
     Indication: Acute myocardial infarction
     Dosage: 25 MILLIGRAM, QD
  2. METOPROLOL SUCCINATE [Suspect]
     Active Substance: METOPROLOL SUCCINATE
     Indication: Ejection fraction decreased
  3. ATORVASTATIN [Concomitant]
     Active Substance: ATORVASTATIN
     Indication: Product used for unknown indication
     Dosage: 80 MILLIGRAM, QD
  4. ASPIRIN [Concomitant]
     Active Substance: ASPIRIN
     Indication: Product used for unknown indication
     Dosage: 81 MILLIGRAM, QD
  5. CLOPIDOGREL [Concomitant]
     Active Substance: CLOPIDOGREL BISULFATE
     Indication: Product used for unknown indication
     Dosage: 75 MILLIGRAM, QD

REACTIONS (3)
  - Sinus node dysfunction [Unknown]
  - Atrioventricular block [Unknown]
  - Off label use [Unknown]
